FAERS Safety Report 15779174 (Version 5)
Quarter: 2019Q1

REPORT INFORMATION
  Report Type: Report from Study
  Country: DE (occurrence: DE)
  Receive Date: 20190101
  Receipt Date: 20190219
  Transmission Date: 20190417
  Serious: Yes (Hospitalization)
  Sender: FDA-Public Use
  Company Number: DE-TAKEDA-2018TUS036963

PATIENT
  Sex: Female

DRUGS (2)
  1. XELJANZ [Concomitant]
     Active Substance: TOFACITINIB CITRATE
     Dosage: UNK
  2. VEDOLIZUMAB [Suspect]
     Active Substance: VEDOLIZUMAB
     Indication: INFLAMMATORY BOWEL DISEASE
     Dosage: UNK
     Route: 042
     Dates: start: 20180702, end: 20180924

REACTIONS (1)
  - Appendicitis [Recovered/Resolved]

NARRATIVE: CASE EVENT DATE: 20181228
